FAERS Safety Report 25732718 (Version 1)
Quarter: 2025Q3

REPORT INFORMATION
  Report Type: Spontaneous
  Country: BR (occurrence: BR)
  Receive Date: 20250827
  Receipt Date: 20250827
  Transmission Date: 20251021
  Serious: Yes (Other)
  Sender: SANDOZ
  Company Number: BR-SANDOZ-SDZ2025BR002407

PATIENT
  Sex: Male

DRUGS (6)
  1. ESCITALOPRAM OXALATE [Suspect]
     Active Substance: ESCITALOPRAM OXALATE
     Indication: Product used for unknown indication
     Route: 065
  2. PREGABALIN [Suspect]
     Active Substance: PREGABALIN
     Indication: Schizoaffective disorder
     Route: 065
  3. RISPERIDONE [Suspect]
     Active Substance: RISPERIDONE
     Indication: Schizoaffective disorder
     Route: 065
  4. SECUKINUMAB [Suspect]
     Active Substance: SECUKINUMAB
     Indication: Psoriasis
     Route: 065
  5. TORSILAX [Suspect]
     Active Substance: ACETAMINOPHEN\CAFFEINE\CARISOPRODOL\DICLOFENAC
     Indication: Product used for unknown indication
     Route: 065
  6. VITAMIN D [Suspect]
     Active Substance: VITAMIN D NOS
     Indication: Product used for unknown indication
     Route: 065

REACTIONS (30)
  - Spinal fracture [Unknown]
  - Ankylosing spondylitis [Unknown]
  - Genital erythema [Unknown]
  - Pharmacophobia [Unknown]
  - Nasal dryness [Unknown]
  - Head injury [Unknown]
  - Spinal pain [Unknown]
  - Limb discomfort [Unknown]
  - Pain [Unknown]
  - Skin reaction [Unknown]
  - Impaired quality of life [Unknown]
  - Depressed mood [Unknown]
  - Abdominal pain [Unknown]
  - Abdominal discomfort [Unknown]
  - Dyspnoea [Unknown]
  - Nasal congestion [Unknown]
  - Depression [Unknown]
  - Head discomfort [Not Recovered/Not Resolved]
  - Hypersomnia [Unknown]
  - Burning sensation [Unknown]
  - Nausea [Unknown]
  - Pruritus [Unknown]
  - Headache [Unknown]
  - Somnolence [Unknown]
  - Dry throat [Unknown]
  - Fear of disease [Unknown]
  - Panic disorder [Unknown]
  - Arthralgia [Unknown]
  - Cough [Unknown]
  - Drug ineffective [Unknown]
